FAERS Safety Report 24034752 (Version 1)
Quarter: 2024Q2

REPORT INFORMATION
  Report Type: Spontaneous
  Country: US (occurrence: None)
  Receive Date: 20240628
  Receipt Date: 20240628
  Transmission Date: 20240715
  Serious: Yes (Other)
  Sender: FDA-Public Use
  Company Number: None

PATIENT
  Age: 46 Year
  Sex: Female
  Weight: 99 kg

DRUGS (1)
  1. TIGER BALM [Suspect]
     Active Substance: CAMPHOR (SYNTHETIC)\CAPSICUM OLEORESIN\MENTHOL\METHYL SALICYLATE
     Indication: Arthralgia
     Dosage: OTHER QUANTITY : 0.63 OUNCE(S)?FREQUENCY : AS NEEDED?
     Route: 061

REACTIONS (7)
  - Burning sensation [None]
  - Irritability [None]
  - Pruritus [None]
  - Blister [None]
  - Burns second degree [None]
  - Arthropathy [None]
  - Application site reaction [None]

NARRATIVE: CASE EVENT DATE: 20240622
